FAERS Safety Report 13690705 (Version 1)
Quarter: 2017Q2

REPORT INFORMATION
  Report Type: Spontaneous
  Country: US (occurrence: US)
  Receive Date: 20170626
  Receipt Date: 20170626
  Transmission Date: 20170830
  Serious: No
  Sender: FDA-Public Use
  Company Number: US-CLOVIS ONCOLOGY-CLO-2017-000332

PATIENT
  Age: 70 Year
  Sex: Female

DRUGS (7)
  1. ATIVAN [Concomitant]
     Active Substance: LORAZEPAM
  2. RUBRACA [Suspect]
     Active Substance: RUCAPARIB CAMSYLATE
     Indication: OVARIAN CANCER
     Dosage: 600 MG, BID
     Dates: start: 20170327, end: 201704
  3. NORCO [Concomitant]
     Active Substance: ACETAMINOPHEN\HYDROCODONE BITARTRATE
  4. GABAPENTIN. [Concomitant]
     Active Substance: GABAPENTIN
  5. THYROXINE SODIUM [Concomitant]
     Active Substance: LEVOTHYROXINE SODIUM
  6. RUBRACA [Suspect]
     Active Substance: RUCAPARIB CAMSYLATE
     Dosage: 300 MG, BID
     Route: 048
     Dates: start: 201704
  7. VALSARTAN. [Concomitant]
     Active Substance: VALSARTAN

REACTIONS (6)
  - Underdose [Unknown]
  - International normalised ratio increased [Not Recovered/Not Resolved]
  - Visual impairment [Not Recovered/Not Resolved]
  - Vomiting [Recovered/Resolved]
  - Nausea [Recovering/Resolving]
  - Carbohydrate antigen 125 increased [Not Recovered/Not Resolved]

NARRATIVE: CASE EVENT DATE: 20170327
